FAERS Safety Report 5352237-5 (Version None)
Quarter: 2007Q2

REPORT INFORMATION
  Report Type: 
  Country: None (occurrence: None)
  Receive Date: 20070607
  Receipt Date: 20070525
  Transmission Date: 20071010
  Serious: Yes (Other)
  Sender: FDA-Public Use
  Company Number: DSA_29876_2007

PATIENT
  Age: 71 Year
  Sex: Male

DRUGS (4)
  1. CARDIZEM [Suspect]
     Dosage: 120 MG QD ORAL
     Route: 048
     Dates: end: 19890101
  2. COUMADIN [Concomitant]
  3. ASPIRIN [Concomitant]
  4. MULTIVITAMIN [Concomitant]

REACTIONS (2)
  - FLUSHING [None]
  - HYPERHIDROSIS [None]
